FAERS Safety Report 23042367 (Version 1)
Quarter: 2023Q4

REPORT INFORMATION
  Report Type: Spontaneous
  Country: US (occurrence: US)
  Receive Date: 20231008
  Receipt Date: 20231008
  Transmission Date: 20240110
  Serious: No
  Sender: FDA-Public Use
  Company Number: US-JNJFOC-20230944258

PATIENT
  Age: 3 Year
  Weight: 15.89 kg

DRUGS (1)
  1. CHILDRENS ZYRTEC [Suspect]
     Active Substance: CETIRIZINE HYDROCHLORIDE
     Indication: Product used for unknown indication
     Dosage: DRANK THE ENTIRE REST OF THE PRODUCT LEFT
     Route: 048

REACTIONS (1)
  - Accidental overdose [Unknown]
